FAERS Safety Report 9770977 (Version 2)
Quarter: 2014Q1

REPORT INFORMATION
  Report Type: Spontaneous
  Country: BG (occurrence: BG)
  Receive Date: 20131218
  Receipt Date: 20140116
  Transmission Date: 20141002
  Serious: Yes (Hospitalization, Other)
  Sender: FDA-Public Use
  Company Number: ALCN2013BG006245

PATIENT
  Age: 3 Month
  Sex: Female
  Weight: 5.3 kg

DRUGS (3)
  1. BRINZOLAMIDE [Suspect]
     Indication: DEVELOPMENTAL GLAUCOMA
     Route: 047
  2. TIMOLOL FALCON [Suspect]
     Indication: DEVELOPMENTAL GLAUCOMA
     Route: 047
  3. BRIMONIDINE [Suspect]
     Indication: DEVELOPMENTAL GLAUCOMA
     Route: 047

REACTIONS (3)
  - Depressed level of consciousness [Recovered/Resolved]
  - Cardiogenic shock [Recovered/Resolved]
  - Toxicity to various agents [Recovered/Resolved]
